FAERS Safety Report 6466086-8 (Version None)
Quarter: 2009Q4

REPORT INFORMATION
  Report Type: 
  Country: None (occurrence: None)
  Receive Date: 20091201
  Receipt Date: 20091201
  Transmission Date: 20100525
  Serious: No
  Sender: FDA-Public Use
  Company Number: None

PATIENT
  Age: 63 Year
  Sex: Male
  Weight: 104.3273 kg

DRUGS (1)
  1. LISINOPRIL AND HYDROCHLOROTHIAZIDE [Suspect]
     Indication: HYPERTENSION
     Dosage: 1 TABLET A DAY MOUTH FEB OR MAR OF 2009 UNTIL 23 NOV 09
     Route: 048
     Dates: start: 20090201, end: 20091123

REACTIONS (9)
  - ARTHRALGIA [None]
  - CARPAL TUNNEL SYNDROME [None]
  - HYPOAESTHESIA [None]
  - JOINT STIFFNESS [None]
  - MUSCLE SPASMS [None]
  - MUSCULOSKELETAL STIFFNESS [None]
  - PERSONALITY CHANGE [None]
  - PRURITUS [None]
  - SENSATION OF HEAVINESS [None]
